APPROVED DRUG PRODUCT: FLUVOXAMINE MALEATE
Active Ingredient: FLUVOXAMINE MALEATE
Strength: 100MG
Dosage Form/Route: CAPSULE, EXTENDED RELEASE;ORAL
Application: A203240 | Product #001
Applicant: TORRENT PHARMACEUTICALS LTD
Approved: Oct 31, 2014 | RLD: No | RS: No | Type: DISCN